FAERS Safety Report 15790532 (Version 2)
Quarter: 2019Q1

REPORT INFORMATION
  Report Type: Report from Study
  Country: US (occurrence: US)
  Receive Date: 20190104
  Receipt Date: 20190220
  Transmission Date: 20190417
  Serious: Yes (Death)
  Sender: FDA-Public Use
  Company Number: US-TAIHO ONCOLOGY  INC-EU-2018-02424

PATIENT
  Age: 72 Year
  Sex: Female

DRUGS (7)
  1. LONSURF [Suspect]
     Active Substance: TIPIRACIL HYDROCHLORIDE\TRIFLURIDINE
     Indication: ADENOCARCINOMA OF COLON
     Route: 048
     Dates: start: 20181119, end: 20181130
  2. CLEOCIN [Concomitant]
     Active Substance: CLINDAMYCIN PHOSPHATE
     Dates: start: 20181106
  3. LOMOTIL [Concomitant]
     Active Substance: ATROPINE SULFATE\DIPHENOXYLATE HYDROCHLORIDE
     Dates: start: 20181106
  4. TRESIBA FLEX [Concomitant]
     Dates: start: 20181106
  5. TRIAMT/HCTZ [Concomitant]
     Active Substance: HYDROCHLOROTHIAZIDE\TRIAMTERENE
     Dosage: 37.5-25
     Dates: start: 20181106
  6. ALEVE [Concomitant]
     Active Substance: NAPROXEN SODIUM
     Dates: start: 20181106
  7. ELIQUIS [Concomitant]
     Active Substance: APIXABAN
     Dates: start: 20181106

REACTIONS (4)
  - Swelling [Unknown]
  - Disease progression [Fatal]
  - Fatigue [Unknown]
  - Hyperbilirubinaemia [Unknown]

NARRATIVE: CASE EVENT DATE: 2018
